FAERS Safety Report 6203047-8 (Version None)
Quarter: 2009Q2

REPORT INFORMATION
  Report Type: 
  Country: None (occurrence: None)
  Receive Date: 20090521
  Receipt Date: 20090521
  Transmission Date: 20091009
  Serious: Yes (Life-Threatening)
  Sender: FDA-Public Use
  Company Number: None

PATIENT
  Age: 51 Year
  Sex: Male
  Weight: 99.7913 kg

DRUGS (4)
  1. BENZONATATE [Suspect]
     Indication: UPPER RESPIRATORY TRACT INFECTION
     Dosage: 1 CAPSULE 3/DAY PO
     Route: 048
     Dates: start: 20090517, end: 20090519
  2. CLARITIN [Concomitant]
  3. ALBUTEROL [Concomitant]
  4. BENADRYL [Concomitant]

REACTIONS (1)
  - DRUG HYPERSENSITIVITY [None]
